FAERS Safety Report 6305016-6 (Version None)
Quarter: 2009Q3

REPORT INFORMATION
  Report Type: 
  Country: None (occurrence: None)
  Receive Date: 20090806
  Receipt Date: 20090731
  Transmission Date: 20100115
  Serious: Yes (Other)
  Sender: FDA-Public Use
  Company Number: 2009SP016207

PATIENT
  Age: 89 Year
  Sex: Male
  Weight: 77.1115 kg

DRUGS (7)
  1. MIRALAX [Suspect]
     Indication: CONSTIPATION
     Dosage: 17 GM; BID; PO
     Route: 048
     Dates: start: 20040101
  2. MIRALAX [Suspect]
     Indication: DRUG USE FOR UNKNOWN INDICATION
     Dosage: 17 GM; BID; PO
     Route: 048
     Dates: start: 20040101
  3. BLOOD PRESSURE MEDICATION [Concomitant]
  4. THYROID MEDICATION [Concomitant]
  5. LISINOPRIL [Concomitant]
  6. PROPRANOLOL [Concomitant]
  7. THYROXIN [Concomitant]

REACTIONS (3)
  - BLOOD COUNT ABNORMAL [None]
  - HAEMORRHOIDS [None]
  - RECTAL HAEMORRHAGE [None]
